FAERS Safety Report 8203241-0 (Version None)
Quarter: 2012Q1

REPORT INFORMATION
  Report Type: 
  Country: None (occurrence: None)
  Receive Date: 20120312
  Receipt Date: 20120227
  Transmission Date: 20120608
  Serious: Yes (Hospitalization, Other)
  Sender: FDA-Public Use
  Company Number: JP-ROCHE-1040576

PATIENT
  Sex: Female
  Weight: 47 kg

DRUGS (2)
  1. AVASTIN [Suspect]
     Indication: BREAST CANCER METASTATIC
     Route: 041
     Dates: start: 20111220, end: 20120105
  2. PACLITAXEL [Concomitant]
     Indication: BREAST CANCER METASTATIC
     Route: 041
     Dates: start: 20111220, end: 20111220

REACTIONS (6)
  - EPISTAXIS [None]
  - HEPATIC FAILURE [None]
  - SPLENOMEGALY [None]
  - MOUTH HAEMORRHAGE [None]
  - DUODENAL ULCER PERFORATION [None]
  - HEPATOMEGALY [None]
